FAERS Safety Report 8272139-4 (Version None)
Quarter: 2012Q2

REPORT INFORMATION
  Report Type: 
  Country: None (occurrence: None)
  Receive Date: 20120410
  Receipt Date: 20120227
  Transmission Date: 20120825
  Serious: No
  Sender: FDA-Public Use
  Company Number: US-ASTRAZENECA-2012SE02121

PATIENT
  Age: 58 Year
  Sex: Male

DRUGS (6)
  1. ADVAID DISKUS [Concomitant]
  2. DEXAMETHASONE [Concomitant]
  3. NOVOLIN 70/30 [Concomitant]
  4. ALBUTEROL SULFATE [Concomitant]
  5. MORPHINE SULFATE [Concomitant]
  6. VANDETANIB [Suspect]
     Indication: THYROID CANCER
     Route: 048

REACTIONS (10)
  - YELLOW SKIN [None]
  - HOT FLUSH [None]
  - HEART RATE INCREASED [None]
  - EPISTAXIS [None]
  - ORAL PAIN [None]
  - LYMPHADENOPATHY [None]
  - CONTUSION [None]
  - BLOOD PRESSURE INCREASED [None]
  - ACNE [None]
  - DECREASED APPETITE [None]
